FAERS Safety Report 10184807 (Version 1)
Quarter: 2014Q2

REPORT INFORMATION
  Report Type: Spontaneous
  Country: US (occurrence: US)
  Receive Date: 20140521
  Receipt Date: 20140521
  Transmission Date: 20141212
  Serious: Yes (Other)
  Sender: FDA-Public Use
  Company Number: US-ELI_LILLY_AND_COMPANY-US201405003974

PATIENT
  Age: 86 Year
  Sex: Female

DRUGS (9)
  1. ADCIRCA [Suspect]
     Indication: PRODUCT USED FOR UNKNOWN INDICATION
     Dosage: 40 MG, QD
     Route: 065
     Dates: start: 20130909, end: 20140507
  2. LETAIRIS [Suspect]
     Indication: PULMONARY ARTERIAL HYPERTENSION
     Dosage: 10 MG, QD
     Route: 065
     Dates: start: 20130210, end: 20140507
  3. HYDROCHLOROTHIAZIDE W/TRIAMTERENE [Concomitant]
     Route: 065
  4. ACTONEL [Concomitant]
     Route: 065
  5. LIPITOR [Concomitant]
     Route: 065
  6. COENZYME Q10 [Concomitant]
     Route: 065
  7. CALCIUM [Concomitant]
     Route: 065
  8. MELOXICAM [Concomitant]
     Route: 065
  9. EXFORGE [Concomitant]
     Route: 065

REACTIONS (1)
  - Pancreatic carcinoma [Unknown]
